FAERS Safety Report 10185519 (Version 1)
Quarter: 2014Q2

REPORT INFORMATION
  Report Type: Spontaneous
  Country: US (occurrence: US)
  Receive Date: 20140521
  Receipt Date: 20140521
  Transmission Date: 20141212
  Serious: Yes (Hospitalization)
  Sender: FDA-Public Use
  Company Number: US-ROXANE LABORATORIES, INC.-2014-RO-00765RO

PATIENT
  Age: 42 Year
  Sex: Female

DRUGS (9)
  1. CYCLOPHOSPHAMIDE TABLETS USP [Suspect]
     Indication: INVASIVE DUCTAL BREAST CARCINOMA
     Route: 065
  2. CYCLOPHOSPHAMIDE TABLETS USP [Suspect]
     Route: 065
  3. ADRIAMYCIN [Suspect]
     Indication: INVASIVE DUCTAL BREAST CARCINOMA
     Route: 065
  4. ADRIAMYCIN [Suspect]
     Route: 065
  5. PACLITAXEL [Suspect]
     Indication: INVASIVE DUCTAL BREAST CARCINOMA
     Route: 065
  6. PACLITAXEL [Suspect]
     Route: 065
  7. DOCUSATE SODIUM [Concomitant]
     Route: 065
  8. MORPHINE [Concomitant]
     Route: 065
  9. PREGABALIN [Concomitant]
     Route: 065

REACTIONS (1)
  - Acute hepatitis C [Recovered/Resolved]
